FAERS Safety Report 20889371 (Version 2)
Quarter: 2022Q4

REPORT INFORMATION
  Report Type: Spontaneous
  Country: US (occurrence: US)
  Receive Date: 20220530
  Receipt Date: 20221013
  Transmission Date: 20230113
  Serious: No
  Sender: FDA-Public Use
  Company Number: US-Calliditas-2022CAL00087

PATIENT
  Age: 32 Year
  Sex: Female

DRUGS (10)
  1. TARPEYO [Suspect]
     Active Substance: BUDESONIDE
     Indication: IgA nephropathy
     Dosage: 16 MG (4 MG CAPSULES) DAILY
     Route: 050
     Dates: start: 20220505
  2. LASIX [Concomitant]
     Active Substance: FUROSEMIDE
     Dosage: INCREASED TO 80 MG ONCE DAILY ; AS NECESSARY
  3. FARXIGA [Concomitant]
     Active Substance: DAPAGLIFLOZIN PROPANEDIOL
  4. LISINOPRIL [Concomitant]
     Active Substance: LISINOPRIL
  5. CRESTOR [Concomitant]
     Active Substance: ROSUVASTATIN CALCIUM
  6. LEXAPRO [Concomitant]
     Active Substance: ESCITALOPRAM OXALATE
  7. LEVOTHYROXINE [Concomitant]
     Active Substance: LEVOTHYROXINE
  8. POTASSIUM [Concomitant]
     Active Substance: POTASSIUM
  9. MAGNESIUM OXIDE [Concomitant]
     Active Substance: MAGNESIUM OXIDE
  10. TOPAMAX [Concomitant]
     Active Substance: TOPIRAMATE

REACTIONS (4)
  - Swelling face [Recovered/Resolved]
  - Periorbital swelling [Recovering/Resolving]
  - Product dose omission issue [Recovered/Resolved]
  - Abdominal distension [Recovering/Resolving]
